FAERS Safety Report 13243638 (Version 8)
Quarter: 2018Q2

REPORT INFORMATION
  Report Type: Spontaneous
  Country: US (occurrence: US)
  Receive Date: 20170216
  Receipt Date: 20180423
  Transmission Date: 20180711
  Serious: No
  Sender: FDA-Public Use
  Company Number: US-ACTELION-A-US2017-149948

PATIENT
  Age: 85 Year
  Sex: Female
  Weight: 63.49 kg

DRUGS (7)
  1. OXYGEN. [Concomitant]
     Active Substance: OXYGEN
  2. ADEMPAS [Suspect]
     Active Substance: RIOCIGUAT
     Indication: PRODUCT USED FOR UNKNOWN INDICATION
     Dosage: 2 MG, TID
     Route: 065
  3. ADEMPAS [Suspect]
     Active Substance: RIOCIGUAT
     Dosage: 1 MG, BID
     Route: 065
  4. ADEMPAS [Suspect]
     Active Substance: RIOCIGUAT
     Dosage: 0.5 MG, TID
     Route: 065
  5. AMLODIPINE [Concomitant]
     Active Substance: AMLODIPINE BESYLATE
  6. OPSUMIT [Suspect]
     Active Substance: MACITENTAN
     Indication: PULMONARY ARTERIAL HYPERTENSION
     Dosage: 10 MG, QD
     Route: 048
  7. ADEMPAS [Suspect]
     Active Substance: RIOCIGUAT
     Dosage: 1 MG, TID
     Route: 065
     Dates: start: 20170203

REACTIONS (17)
  - Blood pressure decreased [Unknown]
  - Presyncope [Unknown]
  - Pulmonary arterial hypertension [Unknown]
  - Dyspnoea exertional [Unknown]
  - Hypotension [Unknown]
  - Disease progression [Unknown]
  - Asthenia [Unknown]
  - Feeling abnormal [Unknown]
  - Oxygen consumption increased [Unknown]
  - Dizziness [Unknown]
  - Vertigo [Unknown]
  - Dyspnoea [Unknown]
  - Constipation [Unknown]
  - Decreased appetite [Unknown]
  - Aspiration [Unknown]
  - Cough [Unknown]
  - Mental impairment [Unknown]
